FAERS Safety Report 26008916 (Version 2)
Quarter: 2025Q4

REPORT INFORMATION
  Report Type: Report from Study
  Country: US (occurrence: US)
  Receive Date: 20251106
  Receipt Date: 20251128
  Transmission Date: 20260117
  Serious: Yes (Hospitalization, Other)
  Sender: ABBVIE
  Company Number: US-ABBVIE-6343838

PATIENT
  Age: 61 Year
  Sex: Male

DRUGS (2)
  1. RINVOQ [Suspect]
     Active Substance: UPADACITINIB
     Indication: Dermatitis atopic
     Route: 048
     Dates: start: 20250327
  2. RINVOQ [Suspect]
     Active Substance: UPADACITINIB
     Indication: Dermatitis atopic
     Route: 048
     Dates: start: 2025

REACTIONS (8)
  - Road traffic accident [Recovering/Resolving]
  - Pulmonary oedema [Recovering/Resolving]
  - Nasopharyngitis [Unknown]
  - Respiratory tract congestion [Unknown]
  - Pulmonary contusion [Recovered/Resolved]
  - Loss of consciousness [Unknown]
  - Rib fracture [Unknown]
  - Increased bronchial secretion [Unknown]

NARRATIVE: CASE EVENT DATE: 20250101
